FAERS Safety Report 9896394 (Version 2)
Quarter: 2014Q1

REPORT INFORMATION
  Report Type: Spontaneous
  Country: US (occurrence: US)
  Receive Date: 20140213
  Receipt Date: 20140213
  Transmission Date: 20141002
  Serious: No
  Sender: FDA-Public Use
  Company Number: US-BRISTOL-MYERS SQUIBB COMPANY-19806298

PATIENT
  Age: 50 Year
  Sex: Female

DRUGS (16)
  1. ABATACEPT SUBQ INJECTION 125MG/ML [Suspect]
     Indication: RHEUMATOID ARTHRITIS
     Dosage: ONGOING
     Route: 058
     Dates: start: 20131025
  2. TOPROL XL [Concomitant]
  3. PROTONIX [Concomitant]
     Dosage: TABS
  4. LEFLUNOMIDE [Concomitant]
     Dosage: TABS
  5. CYCLOBENZAPRINE [Concomitant]
     Dosage: TABS
  6. PREDNISONE [Concomitant]
     Dosage: TABS
  7. IBUPROFEN [Concomitant]
     Dosage: CAPS
  8. LEVOTHYROXINE [Concomitant]
     Dosage: TABS
  9. METOPROLOL [Concomitant]
     Dosage: TABS
  10. VITAMIN D [Concomitant]
     Dosage: 1DF:2000 UNITS
  11. VITAMIN B6 [Concomitant]
     Dosage: TABS
  12. VITAMIN C [Concomitant]
     Dosage: CAPS
  13. TYLENOL [Concomitant]
  14. TRAMADOL [Concomitant]
  15. HYDROCODONE [Concomitant]
  16. ZYRTEC [Concomitant]

REACTIONS (3)
  - Oropharyngeal pain [Unknown]
  - Hot flush [Unknown]
  - Gastritis [Unknown]
